FAERS Safety Report 8549879-2 (Version None)
Quarter: 2012Q3

REPORT INFORMATION
  Report Type: 
  Country: None (occurrence: None)
  Receive Date: 20120730
  Receipt Date: 20111108
  Transmission Date: 20120928
  Serious: No
  Sender: FDA-Public Use
  Company Number: US-GLAXOSMITHKLINE-A0952352A

PATIENT
  Age: 53 Year
  Sex: Female

DRUGS (3)
  1. SUMATRIPTAN SUCCINATE [Suspect]
     Indication: MIGRAINE
     Dosage: 100MG AS REQUIRED
     Route: 048
     Dates: start: 20090101, end: 20090101
  2. SYNTHROID [Concomitant]
  3. ENBREL [Concomitant]

REACTIONS (2)
  - NAUSEA [None]
  - DRUG INEFFECTIVE [None]
